FAERS Safety Report 6681947-2 (Version None)
Quarter: 2010Q2

REPORT INFORMATION
  Report Type: 
  Country: None (occurrence: None)
  Receive Date: 20100414
  Receipt Date: 20100407
  Transmission Date: 20101027
  Serious: Yes (Hospitalization)
  Sender: FDA-Public Use
  Company Number: US-GILEAD-2010-0028372

PATIENT
  Sex: Male
  Weight: 84.898 kg

DRUGS (16)
  1. VIREAD [Suspect]
     Indication: HIV INFECTION
     Dates: start: 20090709
  2. LEXIVA [Suspect]
     Indication: HIV INFECTION
     Dates: start: 20070918
  3. NORVIR [Suspect]
     Indication: HIV INFECTION
     Dates: start: 20070918
  4. ABACAVIR [Suspect]
     Indication: HIV INFECTION
     Dates: start: 20061031
  5. LIDOCAINE [Concomitant]
  6. LOMOTIL [Concomitant]
  7. RENAGEL [Concomitant]
  8. OXYBUTYNIN [Concomitant]
  9. ZYPREXA [Concomitant]
  10. EFFEXOR XR [Concomitant]
  11. GABAPENTIN [Concomitant]
  12. DIVALPROEX SODIUM [Concomitant]
  13. PANTOPRAZOLE [Concomitant]
  14. METOPROLOL SUCCINATE [Concomitant]
  15. CALCIUM CARBONATE [Concomitant]
  16. FOLIC ACID [Concomitant]

REACTIONS (2)
  - CHEST PAIN [None]
  - HYPERTENSION [None]
